FAERS Safety Report 24050414 (Version 1)
Quarter: 2024Q3

REPORT INFORMATION
  Report Type: Spontaneous
  Country: IN (occurrence: IN)
  Receive Date: 20240704
  Receipt Date: 20240704
  Transmission Date: 20241016
  Serious: Yes (Other)
  Sender: NOVARTIS
  Company Number: IN-SANDOZ-SDZ2024IN033046

PATIENT
  Age: 55 Year
  Sex: Female

DRUGS (4)
  1. TACROLIMUS [Suspect]
     Active Substance: TACROLIMUS
     Indication: Renal transplant
     Dosage: 1.5 MG, QD
     Route: 048
  2. TACROLIMUS [Suspect]
     Active Substance: TACROLIMUS
     Dosage: 2 MG
     Route: 065
  3. TACROLIMUS [Suspect]
     Active Substance: TACROLIMUS
     Dosage: UNK, QD, 1.5 MG (M) ; 2 MG (N)
     Route: 048
  4. MYFORTIC [Suspect]
     Active Substance: MYCOPHENOLATE SODIUM
     Indication: Renal transplant
     Dosage: 720 MG, QD, 360 MG, BID
     Route: 048

REACTIONS (6)
  - Post procedural discomfort [Unknown]
  - Arthralgia [Unknown]
  - Dysuria [Unknown]
  - Pollakiuria [Unknown]
  - Limb discomfort [Unknown]
  - Blood creatinine increased [Unknown]

NARRATIVE: CASE EVENT DATE: 20240327
